FAERS Safety Report 7590979-1 (Version None)
Quarter: 2011Q3

REPORT INFORMATION
  Report Type: 
  Country: None (occurrence: None)
  Receive Date: 20110705
  Receipt Date: 20110701
  Transmission Date: 20111222
  Serious: Yes (Death, Hospitalization, Other)
  Sender: FDA-Public Use
  Company Number: PHHY2011JP55808

PATIENT
  Age: 50 Year
  Sex: Male

DRUGS (7)
  1. MEROPENEM [Concomitant]
  2. AMIKACIN [Concomitant]
  3. AMINOBENZYL PENICILLIN [Concomitant]
  4. CEFAZOLIN [Concomitant]
  5. SULBACTAM [Concomitant]
  6. ANTIBIOTICS [Concomitant]
  7. CYCLOSPORINE [Suspect]
     Indication: PSORIASIS
     Route: 048

REACTIONS (11)
  - ARTHRALGIA [None]
  - INFECTION [None]
  - CYST [None]
  - ABSCESS [None]
  - AORTIC ANEURYSM [None]
  - GAIT DISTURBANCE [None]
  - INFLAMMATION [None]
  - SEPSIS [None]
  - HAEMATEMESIS [None]
  - PYREXIA [None]
  - PULMONARY EMBOLISM [None]
